FAERS Safety Report 19048695 (Version 1)
Quarter: 2021Q1

REPORT INFORMATION
  Report Type: Spontaneous
  Country: US (occurrence: US)
  Receive Date: 20210323
  Receipt Date: 20210323
  Transmission Date: 20210420
  Serious: No
  Sender: FDA-Public Use
  Company Number: US-SA-2021SA083869

PATIENT
  Age: 86 Year
  Sex: Female

DRUGS (1)
  1. LANTUS [Suspect]
     Active Substance: INSULIN GLARGINE
     Dosage: 36 UNITS AM, 9 UNITS PM
     Route: 065

REACTIONS (1)
  - Inappropriate schedule of product administration [Unknown]
